FAERS Safety Report 8820896 (Version 1)
Quarter: 2012Q4

REPORT INFORMATION
  Report Type: 
  Country: NO (occurrence: NO)
  Receive Date: 20121002
  Receipt Date: 20121002
  Transmission Date: 20130627
  Serious: Yes (Hospitalization)
  Sender: FDA-Public Use
  Company Number: NO-ROCHE-1139927

PATIENT
  Age: 52 Year
  Sex: Female

DRUGS (2)
  1. ROACTEMRA [Suspect]
     Indication: SYSTEMIC LUPUS ERYTHEMATOSUS
     Route: 042
     Dates: start: 201108, end: 201207
  2. PREDNISOLON [Concomitant]
     Indication: SYSTEMIC LUPUS ERYTHEMATOSUS
     Route: 048
     Dates: start: 1995

REACTIONS (1)
  - Laryngeal oedema [Recovered/Resolved]
